FAERS Safety Report 12890381 (Version 2)
Quarter: 2017Q4

REPORT INFORMATION
  Report Type: Spontaneous
  Country: GB (occurrence: GB)
  Receive Date: 20161027
  Receipt Date: 20171023
  Transmission Date: 20180320
  Serious: Yes (Other)
  Sender: FDA-Public Use
  Company Number: PHFR2016GB008311

PATIENT
  Age: 37 Year
  Sex: Female

DRUGS (1)
  1. SECUKINUMAB. [Suspect]
     Active Substance: SECUKINUMAB
     Indication: PARAPSORIASIS
     Route: 058
     Dates: start: 20151214, end: 20160830

REACTIONS (1)
  - Ectopic pregnancy [Unknown]
